FAERS Safety Report 7397525-6 (Version None)
Quarter: 2011Q2

REPORT INFORMATION
  Report Type: 
  Country: None (occurrence: None)
  Receive Date: 20110406
  Receipt Date: 20110331
  Transmission Date: 20111010
  Serious: Yes (Other)
  Sender: FDA-Public Use
  Company Number: US-PFIZER INC-2011072302

PATIENT
  Sex: Female
  Weight: 77.551 kg

DRUGS (3)
  1. LIPITOR [Suspect]
     Dosage: UNK
  2. HYDROCHLOROTHIAZIDE [Interacting]
     Indication: HYPERTENSION
     Dosage: 25 MG, 1X/DAY
     Route: 048
     Dates: start: 20110101
  3. ACCUPRIL [Interacting]
     Indication: HYPERTENSION
     Dosage: 10 MG, 1X/DAY
     Route: 048
     Dates: start: 20110101

REACTIONS (4)
  - WEIGHT INCREASED [None]
  - DRUG INTERACTION [None]
  - DYSPNOEA [None]
  - OEDEMA MOUTH [None]
